FAERS Safety Report 19415804 (Version 1)
Quarter: 2021Q2

REPORT INFORMATION
  Report Type: Spontaneous
  Country: PT (occurrence: PT)
  Receive Date: 20210614
  Receipt Date: 20210614
  Transmission Date: 20210717
  Serious: Yes (Other)
  Sender: FDA-Public Use
  Company Number: NVSC2021PT121222

PATIENT
  Age: 32 Year
  Sex: Female

DRUGS (9)
  1. TREVICTA [Suspect]
     Active Substance: PALIPERIDONE PALMITATE
     Indication: SCHIZOPHRENIA
     Dosage: 175 MG, Q3MO
     Route: 030
     Dates: start: 201811
  2. PALIPERIDONE PALMITATE [Concomitant]
     Active Substance: PALIPERIDONE PALMITATE
     Indication: SCHIZOPHRENIA
     Dosage: 150 MG, QMO
     Route: 030
  3. INVEGA [Suspect]
     Active Substance: PALIPERIDONE
     Indication: SCHIZOPHRENIA
     Dosage: 12 MG, QD
     Route: 048
     Dates: start: 2016
  4. ARIPIPRAZOLE. [Suspect]
     Active Substance: ARIPIPRAZOLE
     Dosage: 30 MG, QD
     Route: 065
     Dates: start: 2016
  5. TREVICTA [Suspect]
     Active Substance: PALIPERIDONE PALMITATE
     Dosage: 263 MG, QMO
     Route: 030
  6. QUETIAPINE. [Suspect]
     Active Substance: QUETIAPINE
     Dosage: 50 MG
     Route: 065
  7. ARIPIPRAZOLE. [Suspect]
     Active Substance: ARIPIPRAZOLE
     Indication: SCHIZOPHRENIA
     Dosage: 5 MG (10 MG ID HALF TABLET)
     Route: 065
  8. PALIPERIDONE PALMITATE [Concomitant]
     Active Substance: PALIPERIDONE PALMITATE
     Dosage: 75 MG
     Route: 030
     Dates: end: 201811
  9. QUETIAPINE. [Suspect]
     Active Substance: QUETIAPINE
     Indication: SCHIZOPHRENIA
     Dosage: 150 MG (PROLONGED RELEASE)
     Route: 065

REACTIONS (4)
  - Amenorrhoea [Unknown]
  - Social avoidant behaviour [Unknown]
  - Hyperprolactinaemia [Unknown]
  - Delusion [Unknown]
